FAERS Safety Report 11783566 (Version 1)
Quarter: 2015Q4

REPORT INFORMATION
  Report Type: Spontaneous
  Country: JP (occurrence: JP)
  Receive Date: 20151127
  Receipt Date: 20151127
  Transmission Date: 20160305
  Serious: Yes (Death, Other)
  Sender: FDA-Public Use
  Company Number: JP-CIPLA LTD.-2015JP08858

PATIENT

DRUGS (2)
  1. PEMETREXED [Suspect]
     Active Substance: PEMETREXED
     Indication: SPINDLE CELL SARCOMA
     Dosage: 500 MG/M2, DAY 1
     Route: 065
  2. CARBOPLATIN. [Suspect]
     Active Substance: CARBOPLATIN
     Indication: SPINDLE CELL SARCOMA
     Dosage: AUC 5, DAY 1
     Route: 065

REACTIONS (5)
  - Respiratory failure [Fatal]
  - Drug resistance [Unknown]
  - Tumour haemorrhage [Unknown]
  - Oxygen saturation decreased [Not Recovered/Not Resolved]
  - Disease progression [Fatal]
